FAERS Safety Report 8563125-5 (Version None)
Quarter: 2012Q3

REPORT INFORMATION
  Report Type: 
  Country: None (occurrence: None)
  Receive Date: 20120802
  Receipt Date: 20120724
  Transmission Date: 20120928
  Serious: No
  Sender: FDA-Public Use
  Company Number: US-AMGEN-USASP2012045984

PATIENT
  Age: 67 Year
  Sex: Female

DRUGS (1)
  1. ENBREL [Suspect]
     Indication: PSORIASIS
     Dosage: 50 MG, EVERY FIVE DAYS
     Route: 058
     Dates: start: 20120708, end: 20120719

REACTIONS (2)
  - INJECTION SITE ERYTHEMA [None]
  - INFECTION [None]
